FAERS Safety Report 22869545 (Version 3)
Quarter: 2024Q1

REPORT INFORMATION
  Report Type: Report from Study
  Country: US (occurrence: US)
  Receive Date: 20230826
  Receipt Date: 20240119
  Transmission Date: 20240410
  Serious: No
  Sender: FDA-Public Use
  Company Number: US-002147023-NVSC2023US184696

PATIENT
  Age: 7 Year
  Sex: Female

DRUGS (2)
  1. ILARIS [Suspect]
     Active Substance: CANAKINUMAB
     Indication: Pyrexia
     Dosage: 91.5 MG, Q4W
     Route: 058
     Dates: start: 20230427, end: 20230927
  2. ILARIS [Suspect]
     Active Substance: CANAKINUMAB
     Dosage: 44 MG
     Route: 065

REACTIONS (3)
  - Incorrect dose administered [Unknown]
  - Disease recurrence [Unknown]
  - Inappropriate schedule of product administration [Unknown]

NARRATIVE: CASE EVENT DATE: 20230822
